FAERS Safety Report 23256510 (Version 2)
Quarter: 2023Q4

REPORT INFORMATION
  Report Type: Spontaneous
  Country: CH (occurrence: None)
  Receive Date: 20231204
  Receipt Date: 20231226
  Transmission Date: 20240110
  Serious: Yes (Other)
  Sender: FDA-Public Use
  Company Number: CH-ROCHE-3464388

PATIENT
  Sex: Female

DRUGS (3)
  1. TRASTUZUMAB [Suspect]
     Active Substance: TRASTUZUMAB
     Indication: Product used for unknown indication
     Route: 065
  2. NAVELBINE [Concomitant]
     Active Substance: VINORELBINE TARTRATE
  3. GEMCITABINE [Concomitant]
     Active Substance: GEMCITABINE

REACTIONS (2)
  - Cardiac failure [Recovered/Resolved]
  - Metastases to liver [Unknown]
